FAERS Safety Report 6866704-6 (Version None)
Quarter: 2010Q2

REPORT INFORMATION
  Report Type: 
  Country: None (occurrence: None)
  Receive Date: 20100601
  Receipt Date: 20100215
  Transmission Date: 20101027
  Serious: Yes (Hospitalization)
  Sender: FDA-Public Use
  Company Number: US201002004315

PATIENT
  Age: 68 Year
  Sex: Male

DRUGS (16)
  1. BYETTA [Suspect]
     Indication: TYPE 2 DIABETES MELLITUS
     Dosage: 5 UG, 2/D, SUBCUTANEOUS ;10 UG, 2/D, SUBCUTANEOUS
     Route: 058
     Dates: start: 20090101, end: 20100101
  2. BYETTA [Suspect]
     Indication: TYPE 2 DIABETES MELLITUS
     Dosage: 5 UG, 2/D, SUBCUTANEOUS ;10 UG, 2/D, SUBCUTANEOUS
     Route: 058
     Dates: start: 20100101
  3. AMARYL [Concomitant]
  4. ASPIRIN [Concomitant]
  5. CELEBREX [Concomitant]
  6. ZEGERID (OMEPRAZOLE) [Concomitant]
  7. PRAVACHOL [Concomitant]
  8. NEURONTIN [Concomitant]
  9. CLONIDINE [Concomitant]
  10. ALLOPURINOL [Concomitant]
  11. ATENOLOL [Concomitant]
  12. TRICOR [Concomitant]
  13. LOVAZA [Concomitant]
  14. FLOMAX [Concomitant]
  15. VITAMIN B12 [Concomitant]
  16. MULTIVITAMIN [Concomitant]

REACTIONS (8)
  - BLOOD GLUCOSE DECREASED [None]
  - DISORIENTATION [None]
  - GAIT DISTURBANCE [None]
  - INCORRECT DOSE ADMINISTERED [None]
  - INJECTION SITE HAEMATOMA [None]
  - INJECTION SITE PAIN [None]
  - PRESYNCOPE [None]
  - TREMOR [None]
